FAERS Safety Report 11640853 (Version 1)
Quarter: 2015Q4

REPORT INFORMATION
  Report Type: Spontaneous
  Country: US (occurrence: None)
  Receive Date: 20151016
  Receipt Date: 20151016
  Transmission Date: 20160304
  Serious: Yes (Hospitalization)
  Sender: FDA-Public Use
  Company Number: None

PATIENT
  Age: 62 Year
  Sex: Male
  Weight: 103.7 kg

DRUGS (2)
  1. CARBOPLATIN. [Suspect]
     Active Substance: CARBOPLATIN
     Dates: end: 20151012
  2. TAXOL [Suspect]
     Active Substance: PACLITAXEL
     Dates: end: 20151012

REACTIONS (4)
  - Hypotension [None]
  - Pyrexia [None]
  - Hypoxia [None]
  - Lactic acidosis [None]

NARRATIVE: CASE EVENT DATE: 20151012
